FAERS Safety Report 13063815 (Version 1)
Quarter: 2016Q4

REPORT INFORMATION
  Report Type: Spontaneous
  Country: US (occurrence: US)
  Receive Date: 20161227
  Receipt Date: 20161227
  Transmission Date: 20170207
  Serious: No
  Sender: FDA-Public Use
  Company Number: US-PFIZER INC-2016585490

PATIENT
  Age: 83 Year
  Sex: Male

DRUGS (1)
  1. SUTENT [Suspect]
     Active Substance: SUNITINIB MALATE
     Indication: RENAL CANCER
     Dosage: 37.5 MG, CYCLIC, (DAILY X 4 WK, 2 WK OFF)
     Route: 048
     Dates: start: 20160830

REACTIONS (2)
  - Stomatitis [Unknown]
  - Ageusia [Unknown]

NARRATIVE: CASE EVENT DATE: 20161215
